FAERS Safety Report 8362486-X (Version None)
Quarter: 2012Q2

REPORT INFORMATION
  Report Type: 
  Country: None (occurrence: None)
  Receive Date: 20120514
  Receipt Date: 20120514
  Transmission Date: 20120825
  Serious: Yes (Other)
  Sender: FDA-Public Use
  Company Number: None

PATIENT
  Sex: Female
  Weight: 80 kg

DRUGS (1)
  1. ZOLEDRONIC ACID [Suspect]
     Indication: OSTEOPOROSIS
     Dosage: 5 MG  YEARLY IV
     Route: 042
     Dates: start: 20120329, end: 20120329

REACTIONS (4)
  - RENAL FAILURE ACUTE [None]
  - PROTEINURIA [None]
  - BLOOD CREATININE INCREASED [None]
  - ALBUMIN URINE PRESENT [None]
